FAERS Safety Report 20741402 (Version 1)
Quarter: 2022Q2

REPORT INFORMATION
  Report Type: Spontaneous
  Country: FR (occurrence: FR)
  Receive Date: 20220422
  Receipt Date: 20220422
  Transmission Date: 20220721
  Serious: Yes (Other)
  Sender: FDA-Public Use
  Company Number: None

PATIENT
  Age: 78 Year
  Sex: Male
  Weight: 97 kg

DRUGS (13)
  1. VINCRISTINE [Suspect]
     Active Substance: VINCRISTINE
     Indication: Adult T-cell lymphoma/leukaemia
     Dosage: 1,40 MG/M2 (TOTAL 2 MG) ON DAY 1, CYCLIC
     Route: 041
     Dates: start: 20220303, end: 20220303
  2. VINCRISTINE [Suspect]
     Active Substance: VINCRISTINE
     Dosage: 1,40 MG/M2 (TOTAL 2 MG) ON DAY 1, CYCLIC
     Route: 041
     Dates: start: 20220317, end: 20220317
  3. CYCLOPHOSPHAMIDE [Suspect]
     Active Substance: CYCLOPHOSPHAMIDE
     Indication: Adult T-cell lymphoma/leukaemia
     Dosage: 750 MG/M2 (TOTAL 1500 MG) ON DAY 1, CYCLIC
     Route: 041
     Dates: start: 20220303, end: 20220303
  4. CYCLOPHOSPHAMIDE [Suspect]
     Active Substance: CYCLOPHOSPHAMIDE
     Dosage: 750 MG/M2 (TOTAL 1500 MG)ON DAY 1, CYCLIC
     Route: 041
     Dates: start: 20220317, end: 20220317
  5. RITUXIMAB [Suspect]
     Active Substance: RITUXIMAB
     Indication: Adult T-cell lymphoma/leukaemia
     Dosage: 100 MG/M2 (TOTAL PRESCRIBED 200 MG), CYCLIC
     Route: 041
     Dates: start: 20220307, end: 20220307
  6. RITUXIMAB [Suspect]
     Active Substance: RITUXIMAB
     Dosage: 375 MG/M2 (TOTAL PRESCRIBED OF 750 MG)
     Route: 041
     Dates: start: 20220316, end: 20220316
  7. BISOPROLOL FUMARATE [Concomitant]
     Active Substance: BISOPROLOL FUMARATE
     Dosage: 1.25 MG, 1X/DAY (1-0-0)
  8. FUROSEMIDE [Concomitant]
     Active Substance: FUROSEMIDE
     Dosage: 60 MG, DAILY (1-0.5-0)
  9. ELIQUIS [Concomitant]
     Active Substance: APIXABAN
     Dosage: 5 MG, 2X/DAY
  10. CHOLECALCIFEROL [Concomitant]
     Active Substance: CHOLECALCIFEROL
     Dosage: 1 DF, EVERY 3 MONTHS
  11. OMEPRAZOLE [Concomitant]
     Active Substance: OMEPRAZOLE
     Dosage: 10 MG, DAILY
  12. PYGEUM [Concomitant]
     Active Substance: PYGEUM
     Dosage: 100 MG, 1X/DAY (2-0-0)
  13. PENICILLIN V [Concomitant]
     Active Substance: PENICILLIN V
     Dosage: 2 DF, DAILY

REACTIONS (1)
  - Cytokine release syndrome [Recovering/Resolving]

NARRATIVE: CASE EVENT DATE: 20220317
